FAERS Safety Report 4673761-4 (Version None)
Quarter: 2005Q2

REPORT INFORMATION
  Report Type: 
  Country: None (occurrence: None)
  Receive Date: 20050524
  Receipt Date: 20050513
  Transmission Date: 20051028
  Serious: Yes (Life-Threatening, Hospitalization)
  Sender: FDA-Public Use
  Company Number: BRO-007969

PATIENT
  Age: 61 Year
  Sex: Male

DRUGS (5)
  1. IOPAMIDOL-370 [Suspect]
     Indication: COMPUTERISED TOMOGRAM ABDOMEN
     Dosage: 100 ML
     Route: 042
     Dates: start: 20041112, end: 20041112
  2. ASPIRIN [Concomitant]
  3. NITRODERM [Concomitant]
  4. BLOPRESS (CANDESARTAN CILEXETIL) [Concomitant]
  5. GASMOTIN (MOSAPRIDE CITRATE) [Concomitant]

REACTIONS (8)
  - ACUTE PULMONARY OEDEMA [None]
  - ASTHMA [None]
  - CARDIAC FAILURE ACUTE [None]
  - DRUG DOSE OMISSION [None]
  - ELECTROCARDIOGRAM ST SEGMENT ABNORMAL [None]
  - FLUID OVERLOAD [None]
  - HEART RATE INCREASED [None]
  - NAUSEA [None]
